FAERS Safety Report 20666721 (Version 1)
Quarter: 2022Q2

REPORT INFORMATION
  Report Type: Spontaneous
  Country: US (occurrence: None)
  Receive Date: 20220403
  Receipt Date: 20220403
  Transmission Date: 20220721
  Serious: No
  Sender: FDA-Public Use
  Company Number: US-ROCHE-3064905

PATIENT
  Age: 51 Year
  Sex: Female
  Weight: 45.400 kg

DRUGS (2)
  1. OCREVUS [Suspect]
     Active Substance: OCRELIZUMAB
     Indication: Multiple sclerosis
     Dosage: 6TH INFUSION- 02/MAR/2022, NEXT INFUSION SCHEDULED FOR 02/SEP/2022
     Route: 042
  2. PFIZER VACCINE (UNK INGREDIENTS) [Concomitant]

REACTIONS (1)
  - COVID-19 [Not Recovered/Not Resolved]

NARRATIVE: CASE EVENT DATE: 20220326
